FAERS Safety Report 13612866 (Version 3)
Quarter: 2019Q3

REPORT INFORMATION
  Report Type: Spontaneous
  Country: US (occurrence: US)
  Receive Date: 20170605
  Receipt Date: 20190705
  Transmission Date: 20191004
  Serious: Yes (Death, Other)
  Sender: FDA-Public Use
  Company Number: US-ELI_LILLY_AND_COMPANY-US201705011465

PATIENT
  Age: 58 Year
  Sex: Male

DRUGS (3)
  1. CIALIS [Suspect]
     Active Substance: TADALAFIL
     Dosage: UNK UNK, UNKNOWN
     Route: 065
     Dates: start: 20140103, end: 20141215
  2. CIALIS [Suspect]
     Active Substance: TADALAFIL
     Indication: ERECTILE DYSFUNCTION
     Dosage: UNK UNK, UNKNOWN
     Route: 065
     Dates: start: 2001
  3. CIALIS [Suspect]
     Active Substance: TADALAFIL
     Indication: BENIGN PROSTATIC HYPERPLASIA
     Dosage: 20 MG, DAILY
     Route: 065
     Dates: start: 20090819, end: 20141215

REACTIONS (2)
  - Bladder cancer [Fatal]
  - Malignant melanoma stage II [Unknown]

NARRATIVE: CASE EVENT DATE: 20150814
